FAERS Safety Report 13635434 (Version 1)
Quarter: 2017Q2

REPORT INFORMATION
  Report Type: Spontaneous
  Country: US (occurrence: US)
  Receive Date: 20170531
  Receipt Date: 20170531
  Transmission Date: 20170830
  Serious: No
  Sender: FDA-Public Use
  Company Number: US-ASTELLAS-1714930

PATIENT
  Sex: Female

DRUGS (3)
  1. TARCEVA [Suspect]
     Active Substance: ERLOTINIB HYDROCHLORIDE
     Indication: PRODUCT USED FOR UNKNOWN INDICATION
     Route: 048
     Dates: start: 20160128
  2. OXYBUTYNIN [Concomitant]
     Active Substance: OXYBUTYNIN
  3. MELOXICAM. [Concomitant]
     Active Substance: MELOXICAM

REACTIONS (5)
  - Dry skin [Unknown]
  - Fatigue [Unknown]
  - Diarrhoea [Unknown]
  - Acne [Unknown]
  - Dry eye [Unknown]
